FAERS Safety Report 9739919 (Version 2)
Quarter: 2013Q4

REPORT INFORMATION
  Report Type: Report from Study
  Country: FR (occurrence: FR)
  Receive Date: 20131209
  Receipt Date: 20131209
  Transmission Date: 20140711
  Serious: Yes (Other)
  Sender: FDA-Public Use
  Company Number: FR-ROCHE-1143464

PATIENT
  Sex: 0

DRUGS (13)
  1. RITUXIMAB [Suspect]
     Indication: ANTI-NEUTROPHIL CYTOPLASMIC ANTIBODY POSITIVE VASCULITIS
     Dosage: FOR 4 WEEKS (FOR 54 PATIENTS) - RITUXIMAB REMISSION INDUCTION PROTOCOL
     Route: 065
  2. RITUXIMAB [Suspect]
     Dosage: FOR 2 WEEKS (16 PATIENTS) - RITUXIMAB REMISSION INDUCTION PROTOCOL
     Route: 065
  3. RITUXIMAB [Suspect]
     Dosage: FOR 4 WEEKS (1 PATIENT) - RITUXIMAB REMISSION INDUCTION PROTOCOL
     Route: 065
  4. RITUXIMAB [Suspect]
     Dosage: FOR 2 WEEKS (2 PATIENTS) - RITUXIMAB REMISSION INDUCTION PROTOCOL
     Route: 065
  5. RITUXIMAB [Suspect]
     Dosage: EVERY 6 MONTH (18 PATIENTS) - RITUXIMAB MAINTAINANCE THERAPY
     Route: 065
  6. RITUXIMAB [Suspect]
     Dosage: EVERY 6 MONTH (10 PATIENTS) - RITUXIMAB MAINTAINANCE THERAPY
     Route: 065
  7. RITUXIMAB [Suspect]
     Dosage: EVERY 6 MONTH (8 PATIENTS) - RITUXIMAB MAINTAINANCE THERAPY
     Route: 065
  8. RITUXIMAB [Suspect]
     Dosage: ANNUAL INFUSION (3 PATIENTS) - RITUXIMAB MAINTAINANCE THERAPY
     Route: 065
  9. CYCLOSPORINE [Concomitant]
  10. AZATHIOPRINE [Concomitant]
  11. METHOTREXATE [Concomitant]
  12. MYCOPHENOLATE MOFETIL [Concomitant]
     Route: 065
  13. CHLORAMBUCIL [Concomitant]

REACTIONS (8)
  - Macular oedema [Unknown]
  - Neutropenia [Unknown]
  - Acute psychosis [Unknown]
  - Neuropathy peripheral [Unknown]
  - Pulmonary oedema [Unknown]
  - Sarcoma metastatic [Unknown]
  - Skin cancer [Unknown]
  - Thrombophlebitis [Unknown]
